FAERS Safety Report 19003831 (Version 5)
Quarter: 2021Q4

REPORT INFORMATION
  Report Type: Spontaneous
  Country: US (occurrence: US)
  Receive Date: 20210312
  Receipt Date: 20211122
  Transmission Date: 20220303
  Serious: No
  Sender: FDA-Public Use
  Company Number: US-PFIZER INC-2021204732

PATIENT
  Age: 79 Year
  Sex: Female

DRUGS (7)
  1. IBRANCE [Suspect]
     Active Substance: PALBOCICLIB
     Indication: Breast cancer female
     Dosage: 125 MG, CYCLIC
     Dates: start: 20201118
  2. IBRANCE [Suspect]
     Active Substance: PALBOCICLIB
     Dosage: 125 MG, CYCLIC
     Dates: start: 20210104
  3. IBRANCE [Suspect]
     Active Substance: PALBOCICLIB
     Dosage: 125 MG, CYCLIC
     Dates: start: 20210114
  4. IBRANCE [Suspect]
     Active Substance: PALBOCICLIB
     Dosage: 125 MG, CYCLIC
     Dates: start: 20210125
  5. IBRANCE [Suspect]
     Active Substance: PALBOCICLIB
     Dosage: 100 MG
     Dates: start: 20201125
  6. IBRANCE [Suspect]
     Active Substance: PALBOCICLIB
     Dosage: 100 MG
     Dates: start: 20210215
  7. IBRANCE [Suspect]
     Active Substance: PALBOCICLIB
     Dosage: 100 MG
     Dates: start: 20210709

REACTIONS (10)
  - Laboratory test abnormal [Unknown]
  - White blood cell count decreased [Unknown]
  - Diarrhoea [Unknown]
  - Stomatitis [Unknown]
  - Dyspnoea [Unknown]
  - Rash macular [Unknown]
  - Joint swelling [Unknown]
  - Rash erythematous [Unknown]
  - Insomnia [Unknown]
  - Fatigue [Unknown]

NARRATIVE: CASE EVENT DATE: 20210301
